FAERS Safety Report 23078418 (Version 2)
Quarter: 2024Q1

REPORT INFORMATION
  Report Type: Report from Study
  Country: IT (occurrence: IT)
  Receive Date: 20231018
  Receipt Date: 20240325
  Transmission Date: 20240409
  Serious: Yes (Hospitalization)
  Sender: FDA-Public Use
  Company Number: None

PATIENT
  Age: 64 Year
  Sex: Male

DRUGS (1)
  1. VEDOLIZUMAB [Suspect]
     Active Substance: VEDOLIZUMAB
     Indication: Crohn^s disease
     Dosage: 300 MILLIGRAM
     Route: 042
     Dates: start: 20230711, end: 20230825

REACTIONS (3)
  - Jaundice acholuric [Recovering/Resolving]
  - Anaemia [Recovering/Resolving]
  - Hyperalbuminaemia [Recovering/Resolving]

NARRATIVE: CASE EVENT DATE: 20230825
